FAERS Safety Report 19303948 (Version 1)
Quarter: 2021Q2

REPORT INFORMATION
  Report Type: Report from Study
  Country: GB (occurrence: GB)
  Receive Date: 20210525
  Receipt Date: 20210525
  Transmission Date: 20210717
  Serious: Yes (Other)
  Sender: FDA-Public Use
  Company Number: GB-SEATTLE GENETICS-2021SGN02899

PATIENT
  Age: 62 Year
  Sex: Female

DRUGS (1)
  1. BRENTUXIMAB VEDOTIN?MPI [Suspect]
     Active Substance: BRENTUXIMAB VEDOTIN
     Indication: PRIMARY MEDIASTINAL LARGE B-CELL LYMPHOMA
     Dosage: UNK
     Route: 065

REACTIONS (2)
  - Pleural effusion [Unknown]
  - Adenocarcinoma [Unknown]
